FAERS Safety Report 7042289-9 (Version None)
Quarter: 2010Q4

REPORT INFORMATION
  Report Type: 
  Country: None (occurrence: None)
  Receive Date: 20101013
  Receipt Date: 20100311
  Transmission Date: 20110411
  Serious: No
  Sender: FDA-Public Use
  Company Number: US-ASTRAZENECA-2010SE10845

PATIENT
  Age: 86 Year
  Sex: Female
  Weight: 74.8 kg

DRUGS (5)
  1. SYMBICORT [Suspect]
     Indication: CHRONIC OBSTRUCTIVE PULMONARY DISEASE
     Dosage: 640 UG
     Route: 055
     Dates: start: 20091201
  2. SYMBICORT [Suspect]
     Dosage: 320 UG
     Route: 055
     Dates: start: 20100201
  3. SIMVASTATIN [Concomitant]
  4. BETAXOLOL [Concomitant]
  5. SPIRONOLACTONE [Concomitant]

REACTIONS (3)
  - DYSPNOEA [None]
  - EPISTAXIS [None]
  - WEIGHT DECREASED [None]
